FAERS Safety Report 14242228 (Version 1)
Quarter: 2017Q4

REPORT INFORMATION
  Report Type: Spontaneous
  Country: US (occurrence: US)
  Receive Date: 20171130
  Receipt Date: 20171130
  Transmission Date: 20180321
  Serious: Yes (Life-Threatening, Hospitalization, Other)
  Sender: FDA-Public Use
  Company Number: None

PATIENT
  Age: 79 Year
  Sex: Female
  Weight: 76.6 kg

DRUGS (3)
  1. LINEZOLID. [Suspect]
     Active Substance: LINEZOLID
     Indication: BACTERAEMIA
     Route: 042
     Dates: start: 20171125, end: 20171126
  2. HALOPERIDOL. [Concomitant]
     Active Substance: HALOPERIDOL
  3. FENTANYL. [Concomitant]
     Active Substance: FENTANYL

REACTIONS (3)
  - Pyrexia [None]
  - Clonus [None]
  - Serotonin syndrome [None]

NARRATIVE: CASE EVENT DATE: 20171126
